FAERS Safety Report 22228386 (Version 1)
Quarter: 2023Q2

REPORT INFORMATION
  Report Type: Spontaneous
  Country: US (occurrence: None)
  Receive Date: 20230418
  Receipt Date: 20230418
  Transmission Date: 20230721
  Serious: Yes (Disabling)
  Sender: FDA-Public Use
  Company Number: None

PATIENT
  Age: 78 Year
  Sex: Female
  Weight: 74.25 kg

DRUGS (5)
  1. ELIQUIS [Suspect]
     Active Substance: APIXABAN
     Indication: Thrombosis
     Dates: start: 20230310, end: 20230413
  2. PREDNISONE [Concomitant]
     Active Substance: PREDNISONE
  3. AMBIEN [Concomitant]
  4. OXYCODONE [Concomitant]
     Active Substance: OXYCODONE
  5. KEYTRUDA [Concomitant]
     Active Substance: PEMBROLIZUMAB

REACTIONS (6)
  - Decreased appetite [None]
  - Somnolence [None]
  - Confusional state [None]
  - Memory impairment [None]
  - Somnolence [None]
  - Decreased appetite [None]

NARRATIVE: CASE EVENT DATE: 20230414
